FAERS Safety Report 17827855 (Version 1)
Quarter: 2020Q2

REPORT INFORMATION
  Report Type: Spontaneous
  Country: US (occurrence: US)
  Receive Date: 20200527
  Receipt Date: 20200527
  Transmission Date: 20200714
  Serious: No
  Sender: FDA-Public Use
  Company Number: US-SA-2020SA133070

PATIENT
  Age: 22 Year
  Sex: Male

DRUGS (7)
  1. PREDNISONE. [Concomitant]
     Active Substance: PREDNISONE
  2. MELATONIN [Concomitant]
     Active Substance: MELATONIN
  3. CITALOPRAM [Concomitant]
     Active Substance: CITALOPRAM HYDROBROMIDE
  4. DUPIXENT [Suspect]
     Active Substance: DUPILUMAB
     Indication: DERMATITIS ATOPIC
     Dosage: UNK UNK, QOW
     Dates: start: 20200517
  5. ZYRTEC-D 12HR [Concomitant]
  6. TRAZODONE HYDROCHLORIDE. [Concomitant]
     Active Substance: TRAZODONE HYDROCHLORIDE
  7. PEPCID [Concomitant]
     Active Substance: FAMOTIDINE

REACTIONS (3)
  - Nausea [Recovered/Resolved]
  - Fear of injection [Unknown]
  - Dizziness [Recovered/Resolved]
